FAERS Safety Report 5412095-7 (Version None)
Quarter: 2007Q3

REPORT INFORMATION
  Report Type: 
  Country: None (occurrence: None)
  Receive Date: 20070813
  Receipt Date: 20070731
  Transmission Date: 20080115
  Serious: Yes (Hospitalization)
  Sender: FDA-Public Use
  Company Number: SE-AVENTIS-200717013GDDC

PATIENT
  Age: 86 Year
  Sex: Female

DRUGS (10)
  1. FLAGYL [Suspect]
     Indication: INFECTION
     Dosage: DOSE: UNK
     Route: 048
     Dates: start: 20051211
  2. WARAN [Suspect]
     Indication: THROMBOSIS PROPHYLAXIS
     Dosage: DOSE: UNK
     Route: 048
     Dates: end: 20051201
  3. MOVICOL                            /01053601/ [Concomitant]
     Dosage: DOSE: UNK
  4. NOZINAN                            /00038601/ [Concomitant]
  5. HALDOL [Concomitant]
  6. MALVITONA [Concomitant]
     Dosage: DOSE: UNK
  7. FLUDENT [Concomitant]
     Dosage: DOSE: UNK
  8. KALIUM RETARD [Concomitant]
  9. FLUNITRAZEPAM [Concomitant]
  10. FURIX [Concomitant]

REACTIONS (5)
  - CLOSTRIDIUM DIFFICILE COLITIS [None]
  - DRUG INTERACTION [None]
  - ILL-DEFINED DISORDER [None]
  - PROTHROMBIN TIME PROLONGED [None]
  - PROTHROMBIN TIME SHORTENED [None]
